FAERS Safety Report 6253568-7 (Version None)
Quarter: 2009Q3

REPORT INFORMATION
  Report Type: 
  Country: None (occurrence: None)
  Receive Date: 20090701
  Receipt Date: 20090622
  Transmission Date: 20100115
  Serious: Yes (Hospitalization)
  Sender: FDA-Public Use
  Company Number: FR-ELI_LILLY_AND_COMPANY-FR200906004950

PATIENT
  Sex: Female

DRUGS (9)
  1. ZYPREXA [Suspect]
     Route: 048
     Dates: start: 20090422
  2. DEPAKOTE [Concomitant]
     Indication: PSYCHOTIC DISORDER
     Dosage: 1.5 G, DAILY (1/D)
     Route: 048
     Dates: end: 20090301
  3. DEPAKOTE [Concomitant]
     Dosage: 1 G, DAILY (1/D)
     Route: 048
     Dates: start: 20090301, end: 20090508
  4. LEPTICUR [Concomitant]
     Indication: PSYCHOTIC DISORDER
     Route: 048
     Dates: end: 20090508
  5. CLOPIXOL [Concomitant]
     Dates: start: 20090422
  6. ABILIFY [Concomitant]
  7. DEROXAT [Concomitant]
     Dates: start: 20090508
  8. NOCTAMIDE [Concomitant]
     Dates: start: 20090508
  9. SERESTA [Concomitant]
     Dates: start: 20090508

REACTIONS (4)
  - DRUG INEFFECTIVE [None]
  - DRUG LEVEL INCREASED [None]
  - DYSKINESIA [None]
  - HEPATIC ENZYME INCREASED [None]
